FAERS Safety Report 19064163 (Version 1)
Quarter: 2021Q1

REPORT INFORMATION
  Report Type: Spontaneous
  Country: US (occurrence: US)
  Receive Date: 20210326
  Receipt Date: 20210326
  Transmission Date: 20210420
  Serious: No
  Sender: FDA-Public Use
  Company Number: US-GLAXOSMITHKLINE-US2021AMR063710

PATIENT
  Sex: Female

DRUGS (1)
  1. NUCALA [Suspect]
     Active Substance: MEPOLIZUMAB
     Indication: PRODUCT USED FOR UNKNOWN INDICATION
     Dosage: 100 MG, Z EVERY 4 WEEKS
     Route: 058
     Dates: start: 202011

REACTIONS (4)
  - Migraine [Unknown]
  - Hypoaesthesia [Unknown]
  - Rash [Unknown]
  - Hypoaesthesia oral [Unknown]
